FAERS Safety Report 5940810-2 (Version None)
Quarter: 2008Q4

REPORT INFORMATION
  Report Type: 
  Country: None (occurrence: None)
  Receive Date: 20081030
  Receipt Date: 20081015
  Transmission Date: 20090506
  Serious: Yes (Other)
  Sender: FDA-Public Use
  Company Number: 8038437

PATIENT
  Age: 49 Year
  Sex: Male

DRUGS (6)
  1. PREDNISOLONE [Suspect]
     Indication: CONJUNCTIVITIS
     Dates: start: 20030301
  2. PREDNISOLONE [Suspect]
     Indication: CONJUNCTIVITIS
     Dates: start: 20030301
  3. PREDNISOLONE [Suspect]
     Indication: CONJUNCTIVITIS
     Dates: start: 20040901
  4. DAPSONE [Suspect]
     Indication: CONJUNCTIVITIS
     Dates: start: 20030901
  5. MYCOPHENOLATE SODIUM [Suspect]
     Indication: CONJUNCTIVITIS
     Dates: start: 20040401
  6. CYCLOSPORINE [Suspect]
     Indication: CONJUNCTIVITIS
     Dates: start: 20030301

REACTIONS (5)
  - BACTERIAL CULTURE POSITIVE [None]
  - CORNEAL PERFORATION [None]
  - KERATITIS [None]
  - STAPHYLOCOCCAL INFECTION [None]
  - STREPTOCOCCAL INFECTION [None]
